FAERS Safety Report 21815654 (Version 5)
Quarter: 2024Q1

REPORT INFORMATION
  Report Type: Report from Study
  Country: US (occurrence: US)
  Receive Date: 20230104
  Receipt Date: 20240129
  Transmission Date: 20240410
  Serious: Yes (Hospitalization, Other)
  Sender: FDA-Public Use
  Company Number: US-BAUSCH-BL-2022-028296

PATIENT
  Age: 72 Year
  Sex: Male

DRUGS (27)
  1. XIFAXAN [Suspect]
     Active Substance: RIFAXIMIN
     Indication: Hepatic encephalopathy
     Route: 048
     Dates: end: 2023
  2. XIFAXAN [Suspect]
     Active Substance: RIFAXIMIN
     Route: 048
  3. COREG [Concomitant]
     Active Substance: CARVEDILOL
     Indication: Product used for unknown indication
     Dosage: WITH MEALS
     Route: 048
  4. VITAMIN B12 [Concomitant]
     Active Substance: CYANOCOBALAMIN
     Indication: Product used for unknown indication
     Route: 048
  5. NEXIUM [Concomitant]
     Active Substance: ESOMEPRAZOLE MAGNESIUM
     Indication: Gastrointestinal haemorrhage
     Dosage: TAKE ON EMPTY STOMACH, ONE HOUR BEFORE OR TWO HOUR AFTER MEAL
     Route: 048
  6. FERROUS SULFATE [Concomitant]
     Active Substance: FERROUS SULFATE
     Indication: Product used for unknown indication
     Dosage: TAKE ON EMPTY STOMACH, ONE HOUR BEFORE OR TWO HOUR AFTER MEAL
     Route: 048
  7. FLONASE ALLERGY RELIEF [Concomitant]
     Active Substance: FLUTICASONE PROPIONATE
     Indication: Product used for unknown indication
     Dosage: 50 MCG/ACTUATION; TWO SPRAYS TO EACH NOSTRILS AS DIRECTED DAILY. SHAKE BOTTLE GENTLY BEFORE USING
     Route: 045
  8. FOLVITE [Concomitant]
     Active Substance: FOLIC ACID
     Indication: Product used for unknown indication
     Dosage: IN THE MORNING
     Route: 048
  9. LASIX [Concomitant]
     Active Substance: FUROSEMIDE
     Indication: Product used for unknown indication
     Dosage: IN THE MORNING
     Route: 048
  10. KLOR-CON M10 [Concomitant]
     Active Substance: POTASSIUM CHLORIDE
     Indication: Product used for unknown indication
     Dosage: TAKE WITH A MEAL AND A FULL GLASS OF WATER
     Route: 048
  11. LACTULOSE [Concomitant]
     Active Substance: LACTULOSE
     Indication: Hepatic encephalopathy
     Dosage: 10GM/15ML; TITRATE 3-4 BOWEL MOVEMENTS PER DAY, HOLD IF MORE THAN 4 BMS PER DAY
     Route: 048
  12. LACTULOSE [Concomitant]
     Active Substance: LACTULOSE
     Indication: Cerebral disorder
  13. EMLA [Concomitant]
     Active Substance: LIDOCAINE\PRILOCAINE
     Indication: Product used for unknown indication
     Dosage: 2.5/2.5%, APPLY TOPICALLY TO THE AFFECTED AREAS AS NEEDED
     Route: 061
  14. COZAAR [Concomitant]
     Active Substance: LOSARTAN POTASSIUM
     Indication: Product used for unknown indication
     Route: 048
  15. MELATONIN [Concomitant]
     Active Substance: MELATONIN
     Indication: Product used for unknown indication
     Dosage: AT BEDTIME AS NEEDED
     Route: 048
  16. ZOFRAN [Concomitant]
     Active Substance: ONDANSETRON HYDROCHLORIDE
     Indication: Nausea
     Dosage: AT EVERY 8 HOURS AS NEEDED
     Route: 048
  17. ZOFRAN [Concomitant]
     Active Substance: ONDANSETRON HYDROCHLORIDE
     Indication: Vomiting
     Dosage: RAPID DISSOLVE TABLET, PLACED ON TONGUE TO DISSOLVE
     Route: 048
  18. ZOFRAN [Concomitant]
     Active Substance: ONDANSETRON HYDROCHLORIDE
     Dosage: AS NEEDED
     Route: 042
  19. MIRALAX [Concomitant]
     Active Substance: POLYETHYLENE GLYCOL 3350
     Indication: Product used for unknown indication
     Dosage: 17G PACKED, TAKE 1 PACKET BY MOUTH DAILY
     Route: 048
  20. STIVARGA [Concomitant]
     Active Substance: REGORAFENIB
     Indication: Product used for unknown indication
     Dosage: TAKE 3 TABLETS DAILY FROM DAY 1-21 OF EACH 28 DAYS CYCLE. SAME TIME EACH DAY WITH LOT OF MEAL
     Route: 048
  21. SENOKOT-S [Concomitant]
     Active Substance: DOCUSATE SODIUM\SENNOSIDES
     Indication: Product used for unknown indication
     Dosage: 8.6/50MG TABLET
     Route: 048
  22. REVATIO [Concomitant]
     Active Substance: SILDENAFIL CITRATE
     Indication: Product used for unknown indication
     Dosage: 1 TABLET BY MOUTH DAILY AS NEEDED
     Route: 048
  23. DESYREL [Concomitant]
     Active Substance: TRAZODONE HYDROCHLORIDE
     Indication: Sleep disorder
     Dosage: AT BEDTIME
     Route: 048
  24. VITAMIN C [Concomitant]
     Active Substance: ASCORBIC ACID
     Indication: Product used for unknown indication
     Route: 048
  25. GENERLAC [Concomitant]
     Active Substance: LACTULOSE
     Indication: Product used for unknown indication
     Dosage: HOLDS FOR MORE THAN 4 BOWEL MOVEMENTS PER DAY
     Route: 048
  26. PROTONIX [Concomitant]
     Active Substance: PANTOPRAZOLE SODIUM
     Indication: Product used for unknown indication
     Dosage: DO NOT CRUSH OR CHEW
     Route: 048
  27. NULYTELY [Concomitant]
     Active Substance: POLYETHYLENE GLYCOL 3350\POTASSIUM CHLORIDE\SODIUM BICARBONATE\SODIUM CHLORIDE
     Indication: Product used for unknown indication
     Dosage: FINISH IN 2 HOURS OR 8 OUNCES EVERY 15 MIN, BEGIN SECOND 2L OF SOL AT 03:00 MORNING OF PROCEDURE
     Route: 048

REACTIONS (7)
  - Hepatic failure [Unknown]
  - Mental status changes [Unknown]
  - Hepatic encephalopathy [Not Recovered/Not Resolved]
  - Condition aggravated [Not Recovered/Not Resolved]
  - Therapy interrupted [Unknown]
  - Inability to afford medication [Unknown]
  - Insurance issue [Unknown]

NARRATIVE: CASE EVENT DATE: 20220101
